FAERS Safety Report 17268427 (Version 2)
Quarter: 2020Q1

REPORT INFORMATION
  Report Type: Spontaneous
  Country: US (occurrence: US)
  Receive Date: 20200114
  Receipt Date: 20200309
  Transmission Date: 20200409
  Serious: No
  Sender: FDA-Public Use
  Company Number: US-BAYER-2020-006773

PATIENT
  Age: 69 Year
  Sex: Female
  Weight: 65.76 kg

DRUGS (1)
  1. ADEMPAS [Suspect]
     Active Substance: RIOCIGUAT
     Dosage: UNK

REACTIONS (6)
  - Oedema peripheral [Unknown]
  - Mobility decreased [Unknown]
  - Diarrhoea [Unknown]
  - Nausea [Unknown]
  - Feeding disorder [Unknown]
  - Swelling [Unknown]
